FAERS Safety Report 19473219 (Version 1)
Quarter: 2021Q2

REPORT INFORMATION
  Report Type: Spontaneous
  Country: US (occurrence: US)
  Receive Date: 20210629
  Receipt Date: 20210629
  Transmission Date: 20210717
  Serious: No
  Sender: FDA-Public Use
  Company Number: US-DRREDDYS-SPO/USA/21/0136845

PATIENT
  Age: 23 Year
  Sex: Male
  Weight: 79.37 kg

DRUGS (2)
  1. LAMOTRIGINE EXTENDED RELEASE TABLETS [Suspect]
     Active Substance: LAMOTRIGINE
     Route: 048
     Dates: start: 20210610
  2. LAMOTRIGINE EXTENDED RELEASE TABLETS [Suspect]
     Active Substance: LAMOTRIGINE
     Indication: EPILEPSY
     Dosage: ONE 300 MG TABLET AND ONE 100 MG TABLET
     Route: 048
     Dates: start: 202105

REACTIONS (1)
  - Diarrhoea [Unknown]
